FAERS Safety Report 7906603-1 (Version None)
Quarter: 2011Q4

REPORT INFORMATION
  Report Type: 
  Country: None (occurrence: None)
  Receive Date: 20111109
  Receipt Date: 20111109
  Transmission Date: 20120403
  Serious: Yes (Hospitalization)
  Sender: FDA-Public Use
  Company Number: None

PATIENT
  Sex: Male
  Weight: 79.82 kg

DRUGS (1)
  1. CISPLATIN [Suspect]
     Dosage: 400 MG
     Dates: end: 20071127

REACTIONS (9)
  - ORAL PAIN [None]
  - BACTERIAL SEPSIS [None]
  - STOMATITIS [None]
  - INCREASED BRONCHIAL SECRETION [None]
  - TACHYCARDIA [None]
  - PNEUMONIA ASPIRATION [None]
  - LEUKOPENIA [None]
  - PULMONARY EMBOLISM [None]
  - VOMITING [None]
